FAERS Safety Report 22155374 (Version 2)
Quarter: 2024Q1

REPORT INFORMATION
  Report Type: Report from Study
  Country: US (occurrence: US)
  Receive Date: 20230330
  Receipt Date: 20240223
  Transmission Date: 20240410
  Serious: No
  Sender: FDA-Public Use
  Company Number: US-ABBVIE-21K-163-3821463-00

PATIENT
  Sex: Male

DRUGS (7)
  1. LUPRON [Suspect]
     Active Substance: LEUPROLIDE ACETATE
     Indication: Product used for unknown indication
     Route: 065
  2. LUPRON [Suspect]
     Active Substance: LEUPROLIDE ACETATE
     Route: 065
     Dates: start: 20230119
  3. ENZALUTAMIDE [Suspect]
     Active Substance: ENZALUTAMIDE
     Indication: Prostatic specific antigen increased
     Dosage: DURATION TEXT: 11 MONTH 26 DAYS?FORM STRENGTH 40 MG
     Route: 048
     Dates: start: 20220115, end: 20230109
  4. ENZALUTAMIDE [Suspect]
     Active Substance: ENZALUTAMIDE
     Indication: Prostatic specific antigen increased
     Route: 048
     Dates: start: 20240116
  5. BICALUTAMIDE [Concomitant]
     Active Substance: BICALUTAMIDE
     Indication: Product used for unknown indication
  6. XTANDI [Suspect]
     Active Substance: ENZALUTAMIDE
     Indication: Prostatic specific antigen increased
     Route: 048
     Dates: start: 20200410, end: 20200526
  7. XTANDI [Suspect]
     Active Substance: ENZALUTAMIDE
     Indication: Prostatic specific antigen increased
     Dosage: DURATION TEXT: 1 MONTH 17 DAYS?FORM STRENGTH: 80 MILLIGRAM
     Route: 048
     Dates: start: 20201029

REACTIONS (4)
  - Dizziness [Recovered/Resolved]
  - Fatigue [Recovering/Resolving]
  - Incorrect dose administered [Unknown]
  - Off label use [Unknown]
